FAERS Safety Report 9178979 (Version 2)
Quarter: 2013Q2

REPORT INFORMATION
  Report Type: Spontaneous
  Country: US (occurrence: US)
  Receive Date: 20130321
  Receipt Date: 20130404
  Transmission Date: 20140414
  Serious: No
  Sender: FDA-Public Use
  Company Number: US-009507513-1303USA009523

PATIENT
  Age: 79 Year
  Sex: Female
  Weight: 68.27 kg

DRUGS (10)
  1. MIRALAX [Suspect]
     Indication: PRODUCT USED FOR UNKNOWN INDICATION
     Dosage: 17 G, QD
     Route: 048
     Dates: start: 201211
  2. MIRALAX [Suspect]
     Indication: MEDICAL OBSERVATION
  3. ENALAPRIL MALEATE [Concomitant]
     Indication: HYPERTENSION
     Dosage: UNK, UNKNOWN
  4. CARVEDILOL [Concomitant]
     Indication: HYPERTENSION
     Dosage: UNK, UNKNOWN
  5. HYDROCHLOROTHIAZIDE [Concomitant]
     Indication: HYPERTENSION
     Dosage: UNK, UNKNOWN
  6. AMLODIPINE [Concomitant]
     Indication: HYPERTENSION
     Dosage: UNK, UNKNOWN
  7. SIMVASTATIN [Concomitant]
     Indication: HYPERTENSION
     Dosage: UNK, UNKNOWN
  8. CENTRUM (MINERALS (UNSPECIFIED) (+) VITAMINS (UNSPECIFIED)) [Concomitant]
     Indication: PRODUCT USED FOR UNKNOWN INDICATION
     Dosage: UNK, UNKNOWN
  9. CALCIUM (UNSPECIFIED) [Concomitant]
     Indication: PRODUCT USED FOR UNKNOWN INDICATION
     Dosage: UNK, UNKNOWN
  10. OCUVITE [Concomitant]
     Indication: MACULAR DEGENERATION
     Dosage: UNK, UNKNOWN

REACTIONS (3)
  - Abdominal distension [Recovered/Resolved]
  - Gastrointestinal sounds abnormal [Recovered/Resolved]
  - Drug ineffective [Unknown]
